FAERS Safety Report 5196384-X (Version None)
Quarter: 2006Q4

REPORT INFORMATION
  Report Type: 
  Country: None (occurrence: None)
  Receive Date: 20061222
  Receipt Date: 20061214
  Transmission Date: 20070319
  Serious: Yes (Hospitalization)
  Sender: FDA-Public Use
  Company Number: 234027

PATIENT
  Age: 50 Year
  Sex: Male

DRUGS (2)
  1. MABTHERA (RITUXIMAB) CONC FOR SOLUTION FOR INFUSION [Suspect]
     Indication: RHEUMATOID ARTHRITIS
     Dosage: INTRAVENOUS
     Route: 042
  2. CORTICOID (CORTICOSTEROID NOS) [Concomitant]

REACTIONS (3)
  - INFLAMMATION [None]
  - JOINT EFFUSION [None]
  - LEUKOCYTOSIS [None]
